FAERS Safety Report 23779109 (Version 1)
Quarter: 2024Q2

REPORT INFORMATION
  Report Type: Spontaneous
  Country: US (occurrence: US)
  Receive Date: 20240424
  Receipt Date: 20240424
  Transmission Date: 20240716
  Serious: Yes (Death, Other)
  Sender: FDA-Public Use
  Company Number: US-FreseniusKabi-FK202406500

PATIENT
  Sex: Male

DRUGS (3)
  1. FENTANYL [Suspect]
     Active Substance: FENTANYL\FENTANYL CITRATE
     Indication: Sedative therapy
     Dosage: ROUTE: INTRAVENOUS ?FORM OF ADMIN: INFUSION PUMP?10 MCG/ML, RANGING FROM 25 MCG TO 100 MCG PER HOUR,
     Route: 042
  2. FENTANYL [Suspect]
     Active Substance: FENTANYL\FENTANYL CITRATE
     Dosage: 25 MCG TO 100 MCG PER HOUR
     Route: 042
  3. FENTANYL [Suspect]
     Active Substance: FENTANYL\FENTANYL CITRATE
     Dosage: ACCIDENTLY RESTART THE FENTANYL

REACTIONS (6)
  - Accidental overdose [Fatal]
  - Brain hypoxia [Fatal]
  - Tissue anoxia [Fatal]
  - Hypotension [Unknown]
  - Medication error [Unknown]
  - Wrong product administered [Unknown]
